FAERS Safety Report 4698210-1 (Version None)
Quarter: 2005Q2

REPORT INFORMATION
  Report Type: 
  Country: None (occurrence: None)
  Receive Date: 20050623
  Receipt Date: 20050609
  Transmission Date: 20051028
  Serious: Yes (Hospitalization)
  Sender: FDA-Public Use
  Company Number: FR-JNJFOC-20050602622

PATIENT
  Age: 75 Year
  Sex: Male

DRUGS (6)
  1. MOTILYO [Suspect]
     Indication: GASTROINTESTINAL MOTILITY DISORDER
     Route: 049
  2. RISPERDAL [Suspect]
     Indication: DRUG USE FOR UNKNOWN INDICATION
     Route: 049
  3. LASIX [Suspect]
     Indication: DRUG USE FOR UNKNOWN INDICATION
     Route: 049
  4. TERALITHE [Suspect]
     Route: 049
  5. TERALITHE [Suspect]
     Indication: DRUG USE FOR UNKNOWN INDICATION
     Route: 049
  6. OMEPRAZOLE [Concomitant]
     Route: 065

REACTIONS (3)
  - ABDOMINAL PAIN [None]
  - GASTROINTESTINAL OBSTRUCTION [None]
  - IMPAIRED GASTRIC EMPTYING [None]
